FAERS Safety Report 11196119 (Version 1)
Quarter: 2015Q2

REPORT INFORMATION
  Report Type: Spontaneous
  Country: IN (occurrence: IN)
  Receive Date: 20150617
  Receipt Date: 20150617
  Transmission Date: 20150821
  Serious: Yes (Hospitalization)
  Sender: FDA-Public Use
  Company Number: IN-PFIZER INC-2015196575

PATIENT
  Age: 38 Year
  Sex: Female

DRUGS (2)
  1. PHENOBARBITONE SODIUM [Suspect]
     Active Substance: PHENOBARBITAL SODIUM
     Indication: GENERALISED TONIC-CLONIC SEIZURE
     Dosage: 30 MG TABLET (UNK), UNK
     Route: 048
  2. PHENYTOIN. [Suspect]
     Active Substance: PHENYTOIN
     Indication: GENERALISED TONIC-CLONIC SEIZURE
     Dosage: 100 MG (UNK), UNK
     Route: 048

REACTIONS (4)
  - Intentional product misuse [Unknown]
  - Toxicity to various agents [Recovered/Resolved]
  - Self-medication [None]
  - Seizure [Recovered/Resolved]
